FAERS Safety Report 8168926-3 (Version None)
Quarter: 2012Q1

REPORT INFORMATION
  Report Type: 
  Country: None (occurrence: None)
  Receive Date: 20120227
  Receipt Date: 20120202
  Transmission Date: 20120608
  Serious: Yes (Hospitalization, Disabling)
  Sender: FDA-Public Use
  Company Number: PT-US-EMD SERONO, INC.-230001M10PRT

PATIENT
  Sex: Female
  Weight: 62 kg

DRUGS (2)
  1. REBIF [Suspect]
     Indication: MULTIPLE SCLEROSIS
     Route: 058
     Dates: start: 20090323, end: 20091203
  2. ACETAMINOPHEN [Concomitant]
     Indication: ANALGESIC THERAPY
     Route: 048
     Dates: start: 20090401, end: 20091201

REACTIONS (2)
  - UPPER RESPIRATORY TRACT INFECTION [None]
  - HAEMORRHAGIC STROKE [None]
